FAERS Safety Report 9420191 (Version 1)
Quarter: 2013Q3

REPORT INFORMATION
  Report Type: Report from Study
  Country: DE (occurrence: DE)
  Receive Date: 20130725
  Receipt Date: 20130725
  Transmission Date: 20140515
  Serious: Yes (Other)
  Sender: FDA-Public Use
  Company Number: DE-UCBSA-093194

PATIENT
  Sex: 0

DRUGS (1)
  1. NEUPRO [Suspect]
     Indication: RESTLESS LEGS SYNDROME

REACTIONS (6)
  - Arrhythmia [Unknown]
  - Vomiting [Unknown]
  - Application site hypersensitivity [Unknown]
  - Pain [Unknown]
  - Hypertension [Unknown]
  - Syncope [Unknown]
